FAERS Safety Report 25054903 (Version 1)
Quarter: 2025Q1

REPORT INFORMATION
  Report Type: Spontaneous
  Country: US (occurrence: US)
  Receive Date: 20250308
  Receipt Date: 20250308
  Transmission Date: 20250409
  Serious: No
  Sender: ZYDUS PHARM
  Company Number: US-CADILA HEALTHCARE LIMITED-US-ZYDUS-114891

PATIENT

DRUGS (3)
  1. ROFLUMILAST [Suspect]
     Active Substance: ROFLUMILAST
     Indication: Bronchitis
     Route: 048
     Dates: start: 20241009, end: 20241016
  2. ROFLUMILAST [Suspect]
     Active Substance: ROFLUMILAST
     Route: 048
     Dates: start: 20241017, end: 20241026
  3. PAXIL [Concomitant]
     Active Substance: PAROXETINE HYDROCHLORIDE
     Indication: Anxiety
     Route: 065

REACTIONS (3)
  - Pain in extremity [Not Recovered/Not Resolved]
  - Insomnia [Not Recovered/Not Resolved]
  - Therapy cessation [Not Recovered/Not Resolved]

NARRATIVE: CASE EVENT DATE: 20241001
